FAERS Safety Report 4843219-8 (Version None)
Quarter: 2005Q4

REPORT INFORMATION
  Report Type: 
  Country: None (occurrence: None)
  Receive Date: 20051027
  Receipt Date: 20041206
  Transmission Date: 20060501
  Serious: Yes (Other)
  Sender: FDA-Public Use
  Company Number: HQWYE785607DEC04

PATIENT
  Age: 74 Year
  Sex: Female
  Weight: 77.63 kg

DRUGS (6)
  1. PREMARIN [Suspect]
     Indication: HOT FLUSH
     Dosage: UNSPECIFIED DOSAGE, ONE MONDAY-FRIDAY, ORAL
     Route: 048
     Dates: start: 19700101
  2. LOPRESSOR [Concomitant]
  3. PROVERA [Concomitant]
  4. NORVASC [Concomitant]
  5. AVAPRO [Concomitant]
  6. UNSPECIFIED DIURETIC (UNSPECIFIED DIURETIC) [Concomitant]

REACTIONS (1)
  - CEREBROVASCULAR ACCIDENT [None]
